FAERS Safety Report 9516321 (Version 1)
Quarter: 2013Q3

REPORT INFORMATION
  Report Type: Spontaneous
  Country: US (occurrence: US)
  Receive Date: 20130911
  Receipt Date: 20130911
  Transmission Date: 20140515
  Serious: No
  Sender: FDA-Public Use
  Company Number: US-TEVA-431396USA

PATIENT
  Age: 30 Year
  Sex: Female

DRUGS (4)
  1. ACTIQ [Suspect]
     Indication: PAIN
     Route: 048
  2. SAVELLA [Suspect]
  3. KLONOPIN [Concomitant]
  4. MORPHINE SULFATE [Concomitant]

REACTIONS (1)
  - Off label use [Unknown]
